FAERS Safety Report 15599852 (Version 1)
Quarter: 2018Q4

REPORT INFORMATION
  Report Type: Spontaneous
  Country: DE (occurrence: DE)
  Receive Date: 20181108
  Receipt Date: 20181108
  Transmission Date: 20190205
  Serious: Yes (Other)
  Sender: FDA-Public Use
  Company Number: DE-DENTSPLY-2018SCDP000482

PATIENT
  Age: 63 Year
  Sex: Female

DRUGS (2)
  1. ROPIVACAINE. [Concomitant]
     Active Substance: ROPIVACAINE HYDROCHLORIDE
     Indication: PRODUCT USED FOR UNKNOWN INDICATION
     Dosage: 20 ML, UNK
     Route: 065
  2. MEPIVACAINE HCL [Suspect]
     Active Substance: MEPIVACAINE\MEPIVACAINE HYDROCHLORIDE
     Indication: PROCEDURAL PAIN
     Dosage: 5 ML, UNK
     Route: 065

REACTIONS (4)
  - Toxicity to various agents [Unknown]
  - Altered state of consciousness [Unknown]
  - Product administration error [Unknown]
  - Nervous system disorder [Unknown]
